FAERS Safety Report 6121517-8 (Version None)
Quarter: 2009Q1

REPORT INFORMATION
  Report Type: 
  Country: None (occurrence: None)
  Receive Date: 20090317
  Receipt Date: 20090306
  Transmission Date: 20090719
  Serious: Yes (Life-Threatening)
  Sender: FDA-Public Use
  Company Number: IT-SANOFI-SYNTHELABO-A06200800417

PATIENT
  Sex: Female

DRUGS (2)
  1. STILNOX [Suspect]
     Indication: INSOMNIA
     Route: 048
     Dates: start: 20080601, end: 20080607
  2. EFFERALGAN [Suspect]
     Indication: PAIN
     Route: 048
     Dates: start: 20080601, end: 20080607

REACTIONS (1)
  - HEPATITIS [None]
